FAERS Safety Report 6075508-6 (Version None)
Quarter: 2009Q1

REPORT INFORMATION
  Report Type: 
  Country: None (occurrence: None)
  Receive Date: 20090210
  Receipt Date: 20090210
  Transmission Date: 20090719
  Serious: Yes (Disabling, Other)
  Sender: FDA-Public Use
  Company Number: None

PATIENT
  Age: 62 Year
  Sex: Female
  Weight: 58.0604 kg

DRUGS (1)
  1. LEVAQUIN [Suspect]
     Indication: PNEUMONIA
     Dosage: 750 MG 1 PER DAY
     Dates: start: 20090119, end: 20090131

REACTIONS (6)
  - ANXIETY [None]
  - GAIT DISTURBANCE [None]
  - MOVEMENT DISORDER [None]
  - MUSCULOSKELETAL PAIN [None]
  - PAIN [None]
  - TENDON RUPTURE [None]
